FAERS Safety Report 23656795 (Version 1)
Quarter: 2024Q1

REPORT INFORMATION
  Report Type: Spontaneous
  Country: US (occurrence: US)
  Receive Date: 20240321
  Receipt Date: 20240321
  Transmission Date: 20240410
  Serious: Yes (Hospitalization)
  Sender: FDA-Public Use
  Company Number: US-SA-SAC20240319000103

PATIENT
  Sex: Female
  Weight: 59.864 kg

DRUGS (17)
  1. DUPIXENT [Suspect]
     Active Substance: DUPILUMAB
     Indication: Rheumatoid arthritis
     Dosage: 300 MG, QOW
     Route: 058
  2. DUPIXENT [Suspect]
     Active Substance: DUPILUMAB
     Indication: Systemic lupus erythematosus
  3. HUMIRA [Concomitant]
     Active Substance: ADALIMUMAB
  4. LOPERAMIDE HYDROCHLORIDE [Concomitant]
     Active Substance: LOPERAMIDE HYDROCHLORIDE
  5. TORSEMIDE [Concomitant]
     Active Substance: TORSEMIDE
  6. FUROSEMIDE [Concomitant]
     Active Substance: FUROSEMIDE
  7. VICODIN HP [Concomitant]
     Active Substance: ACETAMINOPHEN\HYDROCODONE BITARTRATE
  8. KETOROLAC TROMETHAMINE [Concomitant]
     Active Substance: KETOROLAC TROMETHAMINE
  9. CYCLOBENZAPRINE HYDROCHLORIDE [Concomitant]
     Active Substance: CYCLOBENZAPRINE HYDROCHLORIDE
  10. HYDROXYCHLOROQUINE SULFATE [Concomitant]
     Active Substance: HYDROXYCHLOROQUINE SULFATE
  11. IPRATROPIUM BROMIDE [Concomitant]
     Active Substance: IPRATROPIUM BROMIDE\IPRATROPIUM BROMIDE ANHYDROUS
  12. OMEPRAZOLE [Concomitant]
     Active Substance: OMEPRAZOLE
  13. ARGININE [Concomitant]
     Active Substance: ARGININE
  14. CALCIUM [Concomitant]
     Active Substance: CALCIUM
  15. MAXEPA [FISH OIL] [Concomitant]
  16. ORNITHINE HYDROCHLORIDE [Concomitant]
     Active Substance: ORNITHINE HYDROCHLORIDE
  17. FOLIC ACID [Concomitant]
     Active Substance: FOLIC ACID

REACTIONS (2)
  - Gout [Unknown]
  - Product use in unapproved indication [Unknown]
